FAERS Safety Report 7732647-9 (Version None)
Quarter: 2011Q3

REPORT INFORMATION
  Report Type: 
  Country: None (occurrence: None)
  Receive Date: 20110907
  Receipt Date: 20110831
  Transmission Date: 20111222
  Serious: Yes (Hospitalization)
  Sender: FDA-Public Use
  Company Number: AR-AMGEN-ARGSP2011043928

PATIENT
  Age: 53 Year
  Sex: Female

DRUGS (5)
  1. VITAMIN B12                        /00056201/ [Concomitant]
     Dosage: UNK
  2. INDOMETACIN [Concomitant]
     Dosage: UNK
  3. ENBREL [Suspect]
     Indication: RHEUMATOID ARTHRITIS
     Dosage: 25 MG, 2X/WEEK
     Route: 058
     Dates: start: 20050428
  4. DIAZEPAM [Concomitant]
     Dosage: UNK
  5. FLUOXETINE [Concomitant]
     Dosage: UNK

REACTIONS (1)
  - INTESTINAL OBSTRUCTION [None]
